FAERS Safety Report 7226610-4 (Version None)
Quarter: 2011Q1

REPORT INFORMATION
  Report Type: 
  Country: None (occurrence: None)
  Receive Date: 20110105
  Receipt Date: 20101108
  Transmission Date: 20110831
  Serious: No
  Sender: FDA-Public Use
  Company Number: USA/USA/10/0016540

PATIENT
  Age: 55 Year
  Sex: Female

DRUGS (4)
  1. LEVEMIR [Concomitant]
  2. NATEGLINIDE [Suspect]
     Indication: DIABETES MELLITUS
     Dosage: 180 MG, 06-NOV-2010 -1
     Dates: start: 20101106, end: 20101107
  3. ASPIRIN [Concomitant]
  4. LISINOPRIL [Concomitant]

REACTIONS (4)
  - DISORIENTATION [None]
  - HEART RATE INCREASED [None]
  - HYPERHIDROSIS [None]
  - DIZZINESS [None]
